FAERS Safety Report 17457138 (Version 2)
Quarter: 2020Q1

REPORT INFORMATION
  Report Type: Report from Study
  Country: None (occurrence: US)
  Receive Date: 20200225
  Receipt Date: 20200316
  Transmission Date: 20200409
  Serious: Yes (Hospitalization)
  Sender: FDA-Public Use
  Company Number: US-ABBVIE-19K-163-3198559-00

PATIENT
  Age: 38 Year
  Sex: Female

DRUGS (3)
  1. HUMIRA [Suspect]
     Active Substance: ADALIMUMAB
     Indication: CROHN^S DISEASE
     Route: 058
     Dates: start: 20191120, end: 202001
  2. HUMIRA [Suspect]
     Active Substance: ADALIMUMAB
     Route: 058
     Dates: start: 2020
  3. INFLUENZA VACCINE [Suspect]
     Active Substance: INFLUENZA VIRUS VACCINE
     Indication: PRODUCT USED FOR UNKNOWN INDICATION
     Route: 065

REACTIONS (35)
  - Abdominal pain [Not Recovered/Not Resolved]
  - Blood lactic acid increased [Unknown]
  - Depressed mood [Unknown]
  - Bone pain [Unknown]
  - Pain in extremity [Unknown]
  - Nausea [Recovering/Resolving]
  - Peripheral coldness [Recovering/Resolving]
  - Weight increased [Unknown]
  - Ear pruritus [Not Recovered/Not Resolved]
  - Back pain [Unknown]
  - Rash [Recovering/Resolving]
  - Retching [Recovering/Resolving]
  - Night sweats [Unknown]
  - Influenza [Recovering/Resolving]
  - Chills [Unknown]
  - Decreased appetite [Unknown]
  - Menorrhagia [Unknown]
  - Constipation [Not Recovered/Not Resolved]
  - Weight decreased [Unknown]
  - Loss of personal independence in daily activities [Unknown]
  - Burning sensation [Unknown]
  - Eructation [Recovering/Resolving]
  - Sputum discoloured [Recovering/Resolving]
  - Mucous stools [Unknown]
  - White blood cell count decreased [Recovered/Resolved]
  - Gastroenteritis eosinophilic [Unknown]
  - Diarrhoea [Unknown]
  - Injection site bruising [Unknown]
  - Insomnia [Unknown]
  - Productive cough [Recovering/Resolving]
  - Hormone level abnormal [Unknown]
  - White blood cell count increased [Recovering/Resolving]
  - Nasopharyngitis [Unknown]
  - Erythema [Not Recovered/Not Resolved]
  - Rectal haemorrhage [Unknown]

NARRATIVE: CASE EVENT DATE: 2019
